FAERS Safety Report 9240471 (Version 3)
Quarter: 2013Q3

REPORT INFORMATION
  Report Type: Spontaneous
  Country: ES (occurrence: None)
  Receive Date: 20130412
  Receipt Date: 20130722
  Transmission Date: 20140515
  Serious: Yes (Other)
  Sender: FDA-Public Use
  Company Number: 0237639

PATIENT
  Sex: Female

DRUGS (1)
  1. TACHOSIL [Suspect]
     Indication: HAEMOSTASIS

REACTIONS (3)
  - Gastrointestinal hypomotility [None]
  - Intestinal anastomosis complication [None]
  - Gastric hypomotility [None]
